FAERS Safety Report 5608920-7 (Version None)
Quarter: 2008Q1

REPORT INFORMATION
  Report Type: 
  Country: None (occurrence: None)
  Receive Date: 20080129
  Receipt Date: 20080129
  Transmission Date: 20080703
  Serious: Yes (Hospitalization)
  Sender: FDA-Public Use
  Company Number: None

PATIENT
  Age: 60 Year
  Sex: Male
  Weight: 52.8 kg

DRUGS (3)
  1. BORTEZOMIB [Suspect]
     Indication: RENAL CELL CARCINOMA
     Dosage: 1.6 MG/M2 DAYS 1+8
     Dates: start: 20071128, end: 20071221
  2. BEVACIZUMAB [Suspect]
     Indication: RENAL CELL CARCINOMA
     Dosage: 15 MG/KG DAY 1
     Dates: start: 20071128, end: 20071221
  3. ATENOLOL [Concomitant]

REACTIONS (4)
  - ABDOMINAL PAIN [None]
  - DIARRHOEA [None]
  - NAUSEA [None]
  - VOMITING [None]
